FAERS Safety Report 6913475-0 (Version None)
Quarter: 2010Q3

REPORT INFORMATION
  Report Type: 
  Country: None (occurrence: None)
  Receive Date: 20100716
  Receipt Date: 20091117
  Transmission Date: 20110219
  Serious: Yes (Other)
  Sender: FDA-Public Use
  Company Number: 2009277809

PATIENT
  Sex: Male

DRUGS (1)
  1. CELEBREX [Suspect]
     Dosage: 100 MG, 2X/DAY, ORAL
     Route: 048
     Dates: start: 20090903

REACTIONS (3)
  - HYPERSENSITIVITY [None]
  - RASH [None]
  - URTICARIA [None]
